FAERS Safety Report 7056642-0 (Version None)
Quarter: 2010Q4

REPORT INFORMATION
  Report Type: 
  Country: None (occurrence: None)
  Receive Date: 20101019
  Receipt Date: 20101006
  Transmission Date: 20110411
  Serious: Yes (Life-Threatening)
  Sender: FDA-Public Use
  Company Number: KV201000319

PATIENT
  Age: 61 Year
  Sex: Male

DRUGS (2)
  1. PREDNISOLONE [Suspect]
     Indication: TEMPORAL ARTERITIS
     Dosage: 40 MG, QD; 35 MG, QD; 60 MG, QD
  2. ASPIRIN [Concomitant]

REACTIONS (4)
  - CAROTID ARTERY STENOSIS [None]
  - CEREBELLAR INFARCTION [None]
  - CEREBRAL INFARCTION [None]
  - VASCULITIS [None]
